FAERS Safety Report 9742608 (Version 1)
Quarter: 2013Q4

REPORT INFORMATION
  Report Type: Spontaneous
  Country: US (occurrence: US)
  Receive Date: 20131210
  Receipt Date: 20131210
  Transmission Date: 20140711
  Serious: No
  Sender: FDA-Public Use
  Company Number: US-GILEAD-2009-0024669

PATIENT
  Sex: Female

DRUGS (4)
  1. LETAIRIS [Suspect]
     Indication: PULMONARY ARTERIAL HYPERTENSION
     Dates: start: 20090925
  2. PRAVACHOL [Concomitant]
  3. ALBUTEROL [Concomitant]
  4. ASPIRIN [Concomitant]

REACTIONS (2)
  - Eye inflammation [Unknown]
  - Unevaluable event [Unknown]
